FAERS Safety Report 7404814-5 (Version None)
Quarter: 2011Q2

REPORT INFORMATION
  Report Type: 
  Country: None (occurrence: None)
  Receive Date: 20110411
  Receipt Date: 20110311
  Transmission Date: 20111010
  Serious: Yes (Other)
  Sender: FDA-Public Use
  Company Number: US-BAYER-201038324NA

PATIENT
  Age: 20 Year
  Sex: Female
  Weight: 79 kg

DRUGS (4)
  1. YAZ [Suspect]
     Indication: CONTRACEPTION
     Dosage: UNK
     Dates: start: 20070101, end: 20100101
  2. OCELLA [Suspect]
     Indication: ACNE
  3. AMOXICILINA [Concomitant]
     Dosage: UNK
  4. YASMIN [Suspect]
     Indication: ACNE

REACTIONS (4)
  - NAUSEA [None]
  - ABDOMINAL PAIN UPPER [None]
  - CHOLELITHIASIS [None]
  - CHOLECYSTITIS [None]
